FAERS Safety Report 22178760 (Version 1)
Quarter: 2023Q2

REPORT INFORMATION
  Report Type: Spontaneous
  Country: CN (occurrence: CN)
  Receive Date: 20230405
  Receipt Date: 20230405
  Transmission Date: 20230722
  Serious: Yes (Other)
  Sender: FDA-Public Use
  Company Number: CN-BAYER-2021A234581

PATIENT
  Age: 68 Year
  Sex: Female
  Weight: 51 kg

DRUGS (1)
  1. RIVAROXABAN [Suspect]
     Active Substance: RIVAROXABAN
     Indication: Deep vein thrombosis
     Dosage: 10 MG, QD
     Route: 048
     Dates: start: 20210901, end: 20210906

REACTIONS (12)
  - Gastrointestinal ulcer haemorrhage [Recovering/Resolving]
  - Abdominal pain upper [Recovering/Resolving]
  - Nausea [Recovering/Resolving]
  - Vomiting [Recovering/Resolving]
  - Gastrooesophageal reflux disease [Recovering/Resolving]
  - Dyspepsia [Recovering/Resolving]
  - Haematemesis [Recovering/Resolving]
  - Depressed mood [Recovering/Resolving]
  - Product prescribing issue [Unknown]
  - Inappropriate schedule of product administration [Unknown]
  - Prescribed underdose [Unknown]
  - Underdose [Unknown]

NARRATIVE: CASE EVENT DATE: 20210901
